FAERS Safety Report 9347771 (Version 1)
Quarter: 2013Q2

REPORT INFORMATION
  Report Type: Spontaneous
  Country: ZA (occurrence: ZA)
  Receive Date: 20130614
  Receipt Date: 20130614
  Transmission Date: 20140414
  Serious: Yes (Hospitalization, Other)
  Sender: FDA-Public Use
  Company Number: ZA-009507513-1306ZAF003238

PATIENT
  Sex: Male

DRUGS (2)
  1. ESMERON [Suspect]
     Dosage: UNK
     Dates: start: 201212
  2. ESMERON [Suspect]
     Dosage: UNK

REACTIONS (3)
  - Cardiac arrest [Unknown]
  - Cardiac arrest [Unknown]
  - Surgery [Unknown]
